FAERS Safety Report 7702684-9 (Version None)
Quarter: 2011Q3

REPORT INFORMATION
  Report Type: 
  Country: None (occurrence: None)
  Receive Date: 20110817
  Receipt Date: 20110805
  Transmission Date: 20111222
  Serious: Yes (Hospitalization, Other)
  Sender: FDA-Public Use
  Company Number: 2010SP044540

PATIENT
  Age: 30 Year
  Sex: Female
  Weight: 81.6475 kg

DRUGS (7)
  1. SYNTHROID [Concomitant]
  2. METFORMIN HCL [Concomitant]
  3. NUVARING [Suspect]
     Indication: POLYCYSTIC OVARIES
     Dates: start: 20050601, end: 20080903
  4. DAILY VITAMINS [Concomitant]
  5. PROVENTIL [Concomitant]
  6. TYLENOL-500 [Concomitant]
  7. ASCORBIC ACID [Concomitant]

REACTIONS (27)
  - LUNG INFILTRATION [None]
  - OBESITY [None]
  - PULMONARY EMBOLISM [None]
  - OROPHARYNGEAL PAIN [None]
  - SINUSITIS [None]
  - HEART RATE IRREGULAR [None]
  - PANIC ATTACK [None]
  - PULMONARY INFARCTION [None]
  - MUSCULOSKELETAL CHEST PAIN [None]
  - BENIGN BREAST NEOPLASM [None]
  - PNEUMONIA [None]
  - PROTEIN C DECREASED [None]
  - DYSPNOEA [None]
  - EUSTACHIAN TUBE DYSFUNCTION [None]
  - ANAEMIA [None]
  - ARTHRALGIA [None]
  - LIMB INJURY [None]
  - CHEST PAIN [None]
  - BREAST DISCHARGE [None]
  - INSOMNIA [None]
  - PLEURISY [None]
  - HYPERTENSION [None]
  - MUSCLE SPASMS [None]
  - TEMPOROMANDIBULAR JOINT SYNDROME [None]
  - HYPOKALAEMIA [None]
  - ANXIETY [None]
  - LUNG DISORDER [None]
